FAERS Safety Report 11228541 (Version 4)
Quarter: 2016Q2

REPORT INFORMATION
  Report Type: Report from Study
  Country: DE (occurrence: DE)
  Receive Date: 20150630
  Receipt Date: 20160602
  Transmission Date: 20160815
  Serious: Yes (Hospitalization)
  Sender: FDA-Public Use
  Company Number: DE-ROCHE-1598482

PATIENT
  Age: 68 Year
  Sex: Female
  Weight: 61 kg

DRUGS (21)
  1. TRASTUZUMAB [Suspect]
     Active Substance: TRASTUZUMAB
     Indication: HER-2 POSITIVE BREAST CANCER
     Dosage: LOADING DOSE
     Route: 042
     Dates: start: 20150325, end: 20150325
  2. SITAGLIPTIN [Concomitant]
     Active Substance: SITAGLIPTIN
     Indication: DIABETES MELLITUS
     Route: 048
     Dates: start: 1995
  3. PERTUZUMAB [Suspect]
     Active Substance: PERTUZUMAB
     Dosage: DATE OF LAST DOSE PRIOR TO SAE: 27/MAY/2015
     Route: 042
     Dates: start: 20150415
  4. DOXORUBICIN [Suspect]
     Active Substance: DOXORUBICIN
     Indication: HER-2 POSITIVE BREAST CANCER
     Dosage: ADMINISTRATION FOR FOUR CYCLES AS PER PROTOCOL?DATE OF MOST RECENT DOSE PRIOR TO SAE WAS ON 11/MAR/2
     Route: 042
     Dates: start: 20150121
  5. TAVOR (LORAZEPAM) [Concomitant]
     Active Substance: LORAZEPAM
     Indication: FEAR
     Route: 048
     Dates: start: 20150115
  6. ASPIRIN. [Concomitant]
     Active Substance: ASPIRIN
     Indication: THROMBOCYTOSIS
     Route: 048
     Dates: start: 20150415
  7. OMEPRAZOL [Concomitant]
     Active Substance: OMEPRAZOLE
     Route: 048
     Dates: start: 20150526
  8. PERTUZUMAB [Suspect]
     Active Substance: PERTUZUMAB
     Indication: HER-2 POSITIVE BREAST CANCER
     Dosage: LOADING DOSE
     Route: 042
     Dates: start: 20150325, end: 20150325
  9. TINCTURE OF OPIUM [Concomitant]
     Active Substance: OPIUM
     Indication: DIARRHOEA
     Route: 048
  10. EPROSARTAN [Concomitant]
     Active Substance: EPROSARTAN
     Indication: HYPERTENSION
     Route: 048
     Dates: start: 2000
  11. TRASTUZUMAB [Suspect]
     Active Substance: TRASTUZUMAB
     Dosage: DATE OF LAST DOSE PRIOR TO SAE: 27/MAY/2015
     Route: 042
     Dates: start: 20150415
  12. HYDROCHLOROTHIAZIDE. [Concomitant]
     Active Substance: HYDROCHLOROTHIAZIDE
     Indication: HYPERTENSION
     Route: 048
     Dates: start: 2000
  13. INSULIN [Concomitant]
     Active Substance: INSULIN NOS
     Indication: DIABETES MELLITUS
     Route: 058
     Dates: start: 20150325
  14. PACLITAXEL. [Suspect]
     Active Substance: PACLITAXEL
     Indication: HER-2 POSITIVE BREAST CANCER
     Dosage: DATE OF MORE RECENT DOSE PRIOR TO EVENT ONSET: 10/JUN/2015
     Route: 042
     Dates: start: 20150325
  15. MOUTHWASH SOLUTION (BICARBONATE/LIDOCAINE) [Concomitant]
     Indication: STOMATITIS
     Route: 048
     Dates: start: 20150218
  16. DEXAMETHASONE. [Concomitant]
     Active Substance: DEXAMETHASONE
     Indication: PROPHYLAXIS OF NAUSEA AND VOMITING
     Route: 042
     Dates: start: 20150325
  17. CYCLOPHOSPHAMIDE. [Suspect]
     Active Substance: CYCLOPHOSPHAMIDE
     Indication: HER-2 POSITIVE BREAST CANCER
     Dosage: ADMINISTRATION FOR FOUR CYCLES AS PER PROTOCOL?DATE OF MOST RECENT DOSE PRIOR TO SAE WAS ON 11/MAR/2
     Route: 042
     Dates: start: 20150121
  18. AMLODIPIN [Concomitant]
     Active Substance: AMLODIPINE BESYLATE
     Indication: HYPERTENSION
     Route: 048
     Dates: start: 2013
  19. GRANISETRON [Concomitant]
     Active Substance: GRANISETRON
     Indication: PROPHYLAXIS OF NAUSEA AND VOMITING
     Route: 042
     Dates: start: 20150325
  20. METFORMIN [Concomitant]
     Active Substance: METFORMIN HYDROCHLORIDE
     Indication: DIABETES MELLITUS
     Route: 048
     Dates: start: 1995
  21. MCP [Concomitant]
     Active Substance: METOCLOPRAMIDE HYDROCHLORIDE
     Indication: NAUSEA
     Route: 048
     Dates: start: 20150507

REACTIONS (1)
  - Pulmonary embolism [Recovered/Resolved]

NARRATIVE: CASE EVENT DATE: 20150618
